FAERS Safety Report 20044533 (Version 8)
Quarter: 2022Q3

REPORT INFORMATION
  Report Type: Spontaneous
  Country: US (occurrence: US)
  Receive Date: 20211108
  Receipt Date: 20220727
  Transmission Date: 20221027
  Serious: No
  Sender: FDA-Public Use
  Company Number: US-GLAXOSMITHKLINE-US2021227823

PATIENT
  Age: 74 Year
  Sex: Female

DRUGS (6)
  1. ZEJULA [Suspect]
     Active Substance: NIRAPARIB
     Indication: Ovarian cancer
     Dosage: 200 MG, QD
     Route: 048
     Dates: start: 20211008, end: 20211101
  2. ZEJULA [Suspect]
     Active Substance: NIRAPARIB
     Dosage: 100 MG, QD
     Route: 048
  3. ZEJULA [Suspect]
     Active Substance: NIRAPARIB
     Dosage: 100 MG, QD
  4. ZEJULA [Suspect]
     Active Substance: NIRAPARIB
     Dosage: 100 MG, QD, EVERY EVENING
     Route: 048
  5. ZEJULA [Suspect]
     Active Substance: NIRAPARIB
     Dosage: 100 MG, QD
  6. ZEJULA [Suspect]
     Active Substance: NIRAPARIB
     Dosage: 100 MG, QD

REACTIONS (14)
  - Platelet count decreased [Recovering/Resolving]
  - Fatigue [Not Recovered/Not Resolved]
  - Alopecia [Recovering/Resolving]
  - Dyspepsia [Not Recovered/Not Resolved]
  - Chest discomfort [Recovering/Resolving]
  - Reflux gastritis [Unknown]
  - Dysgeusia [Recovering/Resolving]
  - Balance disorder [Unknown]
  - Fall [Unknown]
  - Lip injury [Unknown]
  - Intracranial mass [Unknown]
  - Pruritus [Unknown]
  - Coronavirus infection [Unknown]
  - Cough [Unknown]

NARRATIVE: CASE EVENT DATE: 20220105
